FAERS Safety Report 8960121 (Version 1)
Quarter: 2012Q4

REPORT INFORMATION
  Report Type: 
  Country: US (occurrence: US)
  Receive Date: 20121212
  Receipt Date: 20121212
  Transmission Date: 20130627
  Serious: No
  Sender: FDA-Public Use
  Company Number: US-MYLANLABS-2012S1018714

PATIENT
  Age: 70 Year
  Sex: Male

DRUGS (5)
  1. CLOPIDOGREL TABLETS USP [Suspect]
     Indication: CEREBROVASCULAR ACCIDENT
     Dates: start: 20120810, end: 20120831
  2. CLOPIDOGREL TABLETS USP [Suspect]
     Indication: ANTICOAGULANT THERAPY
     Dates: start: 20120810, end: 20120831
  3. EXFORGE [Concomitant]
     Indication: HYPERTENSION
     Dosage: 10mg/320mg
  4. COREG CR [Concomitant]
     Indication: HYPERTENSION
  5. CATAPRES [Concomitant]
     Indication: HYPERTENSION
     Route: 062

REACTIONS (7)
  - Asthenia [Recovered/Resolved]
  - Dry throat [Recovered/Resolved]
  - Dry mouth [Recovered/Resolved]
  - Constipation [Recovered/Resolved]
  - Irritability [Recovered/Resolved]
  - Insomnia [Recovered/Resolved]
  - Fatigue [None]
